FAERS Safety Report 4846488-3 (Version None)
Quarter: 2005Q4

REPORT INFORMATION
  Report Type: 
  Country: None (occurrence: None)
  Receive Date: 20051206
  Receipt Date: 20050603
  Transmission Date: 20060501
  Serious: Yes (Hospitalization)
  Sender: FDA-Public Use
  Company Number: US-BRISTOL-MYERS SQUIBB COMPANY-12992947

PATIENT
  Age: 68 Year
  Sex: Male
  Weight: 88 kg

DRUGS (11)
  1. COUMADIN [Suspect]
     Indication: MITRAL VALVE REPAIR
     Dosage: INTERRUPTD ON 24-APR-2005 FOR DECORTICATION AND RESUMED 29-APR-2005
     Route: 048
     Dates: start: 20050319
  2. COUMADIN [Suspect]
     Indication: DRUG SPECIFIC ANTIBODY PRESENT
     Dosage: INTERRUPTD ON 24-APR-2005 FOR DECORTICATION AND RESUMED 29-APR-2005
     Route: 048
     Dates: start: 20050319
  3. BIVALIRUDIN [Concomitant]
     Route: 040
     Dates: start: 20050317, end: 20050317
  4. ASPIRIN [Concomitant]
  5. FUROSEMIDE [Concomitant]
  6. POTASSIUM CHLORIDE [Concomitant]
  7. ENALAPRIL [Concomitant]
  8. ESOMEPRAZOLE [Concomitant]
  9. LEVAQUIN [Concomitant]
  10. TUSSIONEX [Concomitant]
  11. NEXIUM [Concomitant]

REACTIONS (4)
  - HEAD INJURY [None]
  - LOSS OF CONSCIOUSNESS [None]
  - PLEURAL EFFUSION [None]
  - SYNCOPE [None]
